FAERS Safety Report 7411966-X (Version None)
Quarter: 2011Q2

REPORT INFORMATION
  Report Type: 
  Country: None (occurrence: None)
  Receive Date: 20110408
  Receipt Date: 20110408
  Transmission Date: 20111010
  Serious: Yes (Hospitalization)
  Sender: FDA-Public Use
  Company Number: None

PATIENT
  Sex: Female
  Weight: 70.7 kg

DRUGS (2)
  1. CISPLATIN [Suspect]
     Dosage: 131 MG
     Dates: end: 20110328
  2. ETOPOSIDE [Suspect]
     Dosage: 510 MG
     Dates: end: 20110330

REACTIONS (5)
  - SYNCOPE [None]
  - HYPOVOLAEMIA [None]
  - URINARY TRACT INFECTION PSEUDOMONAL [None]
  - DIZZINESS [None]
  - FAECAL INCONTINENCE [None]
